FAERS Safety Report 7596029-5 (Version None)
Quarter: 2011Q3

REPORT INFORMATION
  Report Type: 
  Country: None (occurrence: None)
  Receive Date: 20110707
  Receipt Date: 20110701
  Transmission Date: 20111222
  Serious: Yes (Other)
  Sender: FDA-Public Use
  Company Number: PHHY2011NL48680

PATIENT

DRUGS (5)
  1. LISINOPRIL [Concomitant]
     Dosage: UNK
  2. RISEDRONATE SODIUM [Concomitant]
     Dosage: UNK
  3. CALCICHEW-D3 [Concomitant]
     Dosage: UNK
  4. TERBINAFINE HCL [Suspect]
     Indication: ONYCHOMYCOSIS
     Dosage: 1 DF, QD
     Route: 048
  5. DIPYRIDAMOLE [Concomitant]
     Dosage: UNK

REACTIONS (4)
  - ASTHENIA [None]
  - HEADACHE [None]
  - INSOMNIA [None]
  - DEAFNESS [None]
